FAERS Safety Report 25583509 (Version 1)
Quarter: 2025Q3

REPORT INFORMATION
  Report Type: Report from Study
  Country: GB (occurrence: GB)
  Receive Date: 20250721
  Receipt Date: 20250721
  Transmission Date: 20251021
  Serious: Yes (Death)
  Sender: CELLTRION
  Company Number: GB-CELLTRION INC.-2025GB023737

PATIENT

DRUGS (1)
  1. ADALIMUMAB-AATY [Suspect]
     Active Substance: ADALIMUMAB-AATY
     Indication: Psoriasis
     Dosage: 40MG FOR INJECTION PENS - INJECT ONE PRE-FILLED PEN EVERY TWO WEEKS
     Route: 058
     Dates: start: 202406

REACTIONS (1)
  - Death [Fatal]

NARRATIVE: CASE EVENT DATE: 20250604
